FAERS Safety Report 6781505-5 (Version None)
Quarter: 2010Q2

REPORT INFORMATION
  Report Type: 
  Country: None (occurrence: None)
  Receive Date: 20100617
  Receipt Date: 20100617
  Transmission Date: 20101027
  Serious: Yes (Other)
  Sender: FDA-Public Use
  Company Number: None

PATIENT
  Age: 70 Year
  Sex: Female
  Weight: 54.4316 kg

DRUGS (8)
  1. AZITHROMYCIN [Suspect]
     Indication: UPPER RESPIRATORY TRACT INFECTION
     Dosage: 250 MG 1 PER DAY (2 ON 1ST DAY) ORAL
     Route: 048
     Dates: start: 20100403, end: 20100406
  2. ASTELIN [Concomitant]
  3. ALLEGRA [Concomitant]
  4. FOSAMAX [Concomitant]
  5. VOLTAREN [Concomitant]
  6. CACO3 [Concomitant]
  7. MULTI-VITAMINS [Concomitant]
  8. LIPITOR [Concomitant]

REACTIONS (1)
  - NAUSEA [None]
